FAERS Safety Report 18118216 (Version 1)
Quarter: 2020Q3

REPORT INFORMATION
  Report Type: Spontaneous
  Country: US (occurrence: US)
  Receive Date: 20200805
  Receipt Date: 20200805
  Transmission Date: 20201103
  Serious: Yes (Hospitalization)
  Sender: FDA-Public Use
  Company Number: None

PATIENT
  Age: 61 Year
  Sex: Male

DRUGS (1)
  1. HUMIRA [Suspect]
     Active Substance: ADALIMUMAB
     Indication: CROHN^S DISEASE
     Dosage: ?          OTHER FREQUENCY: 1 PEN (40MG) Q14D;SQ?
     Route: 058
     Dates: start: 20180518

REACTIONS (2)
  - Surgery [None]
  - Product dose omission issue [None]

NARRATIVE: CASE EVENT DATE: 20200804
